FAERS Safety Report 7628488-3 (Version None)
Quarter: 2011Q3

REPORT INFORMATION
  Report Type: 
  Country: None (occurrence: None)
  Receive Date: 20110705
  Receipt Date: 20110620
  Transmission Date: 20111222
  Serious: Yes (Other)
  Sender: FDA-Public Use
  Company Number: 2011PROUSA00417

PATIENT
  Age: 75 Year
  Sex: Male

DRUGS (5)
  1. PROVENGE (SUPULECEL-T) SUSPENSION, 250 ML [Suspect]
  2. PROVENGE (SUPULECEL-T) SUSPENSION, 250 ML [Suspect]
     Indication: PROSTATE CANCER METASTATIC
     Dosage: 250 ML, SINGLE, INTRAVENOUS; 250 ML, SINGLE, INTRAVENOUS; 250 ML, SINGLE, INTRAVENOUS
     Route: 042
     Dates: start: 20110519, end: 20110519
  3. PROVENGE (SUPULECEL-T) SUSPENSION, 250 ML [Suspect]
     Indication: PROSTATE CANCER METASTATIC
     Dosage: 250 ML, SINGLE, INTRAVENOUS; 250 ML, SINGLE, INTRAVENOUS; 250 ML, SINGLE, INTRAVENOUS
     Route: 042
     Dates: start: 20110603, end: 20110603
  4. PROVENGE (SUPULECEL-T) SUSPENSION, 250 ML [Suspect]
     Indication: PROSTATE CANCER METASTATIC
     Dosage: 250 ML, SINGLE, INTRAVENOUS; 250 ML, SINGLE, INTRAVENOUS; 250 ML, SINGLE, INTRAVENOUS
     Route: 042
     Dates: start: 20110617, end: 20110617
  5. PROVENGE (SUPULECEL-T) SUSPENSION, 250 ML [Suspect]

REACTIONS (5)
  - OXYGEN SATURATION DECREASED [None]
  - VOMITING [None]
  - INFUSION RELATED REACTION [None]
  - HYPOTENSION [None]
  - CHILLS [None]
